FAERS Safety Report 10246253 (Version 1)
Quarter: 2014Q2

REPORT INFORMATION
  Report Type: Spontaneous
  Country: US (occurrence: None)
  Receive Date: 20140617
  Receipt Date: 20140617
  Transmission Date: 20141212
  Serious: Yes (Disabling)
  Sender: FDA-Public Use
  Company Number: None

PATIENT
  Age: 27 Year
  Sex: Male
  Weight: 78.93 kg

DRUGS (1)
  1. PROPECIA 1 MG MERCK [Suspect]
     Indication: ALOPECIA
     Dosage: 1 PILL  ONCE DAILY  TAKEN BY MOUTH
     Route: 048
     Dates: start: 20071031, end: 20110216

REACTIONS (12)
  - Erectile dysfunction [None]
  - Insomnia [None]
  - Fatigue [None]
  - Disturbance in attention [None]
  - Memory impairment [None]
  - Mental impairment [None]
  - Muscle twitching [None]
  - Prostatic pain [None]
  - Testicular pain [None]
  - Blood urine present [None]
  - Emotional poverty [None]
  - Genital hypoaesthesia [None]
